FAERS Safety Report 15783041 (Version 2)
Quarter: 2019Q1

REPORT INFORMATION
  Report Type: Spontaneous
  Country: US (occurrence: US)
  Receive Date: 20190102
  Receipt Date: 20190104
  Transmission Date: 20190417
  Serious: Yes (Other)
  Sender: FDA-Public Use
  Company Number: US-PFIZER INC-2018531834

PATIENT
  Sex: Female
  Weight: 83.1 kg

DRUGS (3)
  1. DEPO-PROVERA [Suspect]
     Active Substance: MEDROXYPROGESTERONE ACETATE
     Indication: MENORRHAGIA
  2. DEPO-PROVERA [Suspect]
     Active Substance: MEDROXYPROGESTERONE ACETATE
     Indication: ENDOMETRIOSIS
  3. DEPO-PROVERA [Suspect]
     Active Substance: MEDROXYPROGESTERONE ACETATE
     Indication: MENSTRUAL CYCLE MANAGEMENT
     Dosage: UNK, MONTHLY(FULL VIAL INJECTED MONTHLY)

REACTIONS (10)
  - Arthropathy [Unknown]
  - Ectopic pregnancy [Unknown]
  - Osteoporosis [Unknown]
  - Abortion spontaneous [Unknown]
  - Fertility increased [Unknown]
  - Foetal death [Unknown]
  - Product use in unapproved indication [Unknown]
  - Arthritis [Not Recovered/Not Resolved]
  - Injection site pain [Unknown]
  - Meniscus injury [Unknown]

NARRATIVE: CASE EVENT DATE: 2000
